FAERS Safety Report 22067319 (Version 1)
Quarter: 2023Q1

REPORT INFORMATION
  Report Type: Spontaneous
  Country: FR (occurrence: None)
  Receive Date: 20230307
  Receipt Date: 20230307
  Transmission Date: 20230418
  Serious: Yes (Hospitalization)
  Sender: FDA-Public Use
  Company Number: None

PATIENT
  Age: 23 Year
  Sex: Female
  Weight: 77 kg

DRUGS (3)
  1. RITUXIMAB [Suspect]
     Active Substance: RITUXIMAB
     Indication: Chronic cutaneous lupus erythematosus
     Dosage: 2X/AN 500 MG SEMESTRIEL
     Route: 065
     Dates: start: 20200706, end: 20221027
  2. PENTACARINAT [Suspect]
     Active Substance: PENTAMIDINE ISETHIONATE
     Indication: Prophylaxis
     Route: 065
     Dates: start: 202109, end: 20221219
  3. BENLYSTA [Suspect]
     Active Substance: BELIMUMAB
     Indication: Chronic cutaneous lupus erythematosus
     Dosage: 1 X/MOIS
     Route: 065
     Dates: start: 20210830, end: 20221219

REACTIONS (2)
  - Agranulocytosis [Recovered/Resolved]
  - Thrombotic microangiopathy [Recovering/Resolving]

NARRATIVE: CASE EVENT DATE: 20230116
